FAERS Safety Report 8352624-7 (Version None)
Quarter: 2012Q2

REPORT INFORMATION
  Report Type: 
  Country: None (occurrence: None)
  Receive Date: 20120511
  Receipt Date: 20120504
  Transmission Date: 20120825
  Serious: Yes (Hospitalization)
  Sender: FDA-Public Use
  Company Number: GB-UCBSA-056868

PATIENT
  Age: 72 Year
  Sex: Female
  Weight: 84 kg

DRUGS (3)
  1. METHOTREXATE [Concomitant]
  2. CERTOLIZUMAB [Suspect]
     Indication: RHEUMATOID ARTHRITIS
     Route: 058
     Dates: start: 20110902, end: 20120120
  3. STEROIDS [Concomitant]

REACTIONS (2)
  - HERPES ZOSTER OTICUS [None]
  - PNEUMONIA ASPIRATION [None]
